FAERS Safety Report 7390132 (Version 8)
Quarter: 2019Q2

REPORT INFORMATION
  Report Type: Spontaneous
  Country: DE (occurrence: DE)
  Receive Date: 20100517
  Receipt Date: 20190405
  Transmission Date: 20190711
  Serious: Yes (Death, Hospitalization)
  Sender: FDA-Public Use
  Company Number: DE-MYLANLABS-2010S1007871

PATIENT
  Age: 70 Year
  Sex: Male
  Weight: 82 kg

DRUGS (25)
  1. NEORECORMON [Concomitant]
     Active Substance: ERYTHROPOIETIN
     Indication: NEPHROGENIC ANAEMIA
     Dosage: 4000 INTERNATIONAL UNIT, QW
     Route: 058
     Dates: start: 2008
  2. TORASEMIDE [Concomitant]
     Active Substance: TORSEMIDE
     Indication: HYPERTENSION
     Dosage: 20 MG,BID
     Route: 048
     Dates: start: 2000
  3. ALLOPURINOL. [Concomitant]
     Active Substance: ALLOPURINOL
     Indication: RENAL IMPAIRMENT
     Dosage: 300 MILLIGRAM, QD
     Dates: start: 2008
  4. FENTANYL. [Suspect]
     Active Substance: FENTANYL
     Indication: PAIN
     Dosage: 25 ?G,TID
     Dates: start: 200912
  5. BONDIOL [Concomitant]
     Active Substance: ALFACALCIDOL
     Indication: CHRONIC KIDNEY DISEASE-MINERAL AND BONE DISORDER
     Dosage: .25 ?G,ONCE
     Route: 048
     Dates: start: 2008
  6. NITROSPRAY [Concomitant]
     Active Substance: NITROGLYCERIN
     Indication: CORONARY ARTERY DISEASE
     Dosage: .8 MG,PRN
     Route: 048
     Dates: start: 1998
  7. DEXAMETHASONE. [Concomitant]
     Active Substance: DEXAMETHASONE
     Indication: BRONCHIAL CARCINOMA
     Dosage: 4 MG,UNK
     Route: 048
     Dates: start: 200904
  8. NOVAMINSULFON [Concomitant]
     Active Substance: METAMIZOLE
     Indication: PAIN
     Dosage: 40 GTT,UNK
     Route: 048
     Dates: start: 2009
  9. FENTANYL. [Suspect]
     Active Substance: FENTANYL
     Dosage: 25 ?G/H
     Route: 062
     Dates: start: 200912, end: 20100311
  10. ASPIRIN. [Concomitant]
     Active Substance: ASPIRIN
     Indication: CORONARY ARTERY DISEASE
     Dosage: 100 MG,ONCE
     Route: 048
     Dates: start: 1998
  11. ALLOPURINOL. [Concomitant]
     Active Substance: ALLOPURINOL
     Indication: RENAL IMPAIRMENT
     Dosage: 300 MG,ONCE
     Route: 048
     Dates: start: 2008
  12. ACC                                /00082801/ [Concomitant]
     Active Substance: ACETYLCYSTEINE
     Dosage: 600 MILLIGRAM, QD
     Route: 048
     Dates: start: 2009
  13. FENTANYL. [Suspect]
     Active Substance: FENTANYL
     Dosage: 1 DOSAGE FORM, TID
     Route: 062
     Dates: start: 200912, end: 20100311
  14. SEVREDOL [Suspect]
     Active Substance: MORPHINE
     Dosage: 10 MILLIGRAM, Q8H
     Route: 048
     Dates: start: 201001, end: 20100311
  15. DICLOFENAC [Concomitant]
     Active Substance: DICLOFENAC
     Indication: OSTEOARTHRITIS
     Dosage: UNK
     Route: 048
  16. TRYASOL CODEIN [Suspect]
     Active Substance: CODEINE PHOSPHATE
     Dosage: 120 GTT DROPS, QD
     Route: 048
     Dates: start: 201001, end: 20100311
  17. BISOPROLOL [Concomitant]
     Active Substance: BISOPROLOL
     Indication: CORONARY ARTERY DISEASE
     Dosage: 10 MG,ONCE
     Route: 048
     Dates: start: 1998
  18. PANTOPRAZOL                        /01263204/ [Concomitant]
     Active Substance: PANTOPRAZOLE SODIUM
     Indication: PROPHYLAXIS AGAINST GASTROINTESTINAL ULCER
     Dosage: 40 MG,ONCE
     Route: 048
     Dates: start: 1998
  19. NOVAMINSULFON [Concomitant]
     Active Substance: METAMIZOLE
     Dosage: 120 GTT DROPS, QD
     Route: 048
     Dates: start: 2009
  20. TRYASOL CODEIN [Suspect]
     Active Substance: CODEINE PHOSPHATE
     Indication: BRONCHIAL CARCINOMA
     Dosage: 40 GTT,UNK
     Route: 048
     Dates: start: 201001, end: 20100311
  21. SEVREDOL [Suspect]
     Active Substance: MORPHINE
     Indication: PAIN
     Dosage: 10 MG,ONCE
     Route: 048
     Dates: start: 201001
  22. L-THYROX [Concomitant]
     Active Substance: LEVOTHYROXINE SODIUM
     Indication: HYPOTHYROIDISM
     Dosage: 125 ?G,ONCE
     Route: 048
  23. ATACAND [Concomitant]
     Active Substance: CANDESARTAN CILEXETIL
     Indication: CARDIAC FAILURE CHRONIC
     Dosage: UNK
     Route: 048
     Dates: start: 2008
  24. LOCOL                              /01224502/ [Concomitant]
     Active Substance: FLUVASTATIN SODIUM
     Indication: HYPERLIPIDAEMIA
     Dosage: 80 MG,ONCE
     Route: 048
     Dates: start: 1998
  25. ACC                                /00082801/ [Concomitant]
     Active Substance: ACETYLCYSTEINE
     Indication: BRONCHIAL CARCINOMA
     Dosage: 200 MG,UNK
     Route: 048
     Dates: start: 2009

REACTIONS (8)
  - General physical health deterioration [Unknown]
  - Urinary retention [Unknown]
  - Somnolence [Unknown]
  - Miosis [Unknown]
  - Death [Fatal]
  - Acute kidney injury [Unknown]
  - Overdose [Unknown]
  - Pneumonia [Unknown]

NARRATIVE: CASE EVENT DATE: 20100310
